FAERS Safety Report 9321252 (Version 1)
Quarter: 2013Q2

REPORT INFORMATION
  Report Type: Spontaneous
  Country: FR (occurrence: FR)
  Receive Date: 20130531
  Receipt Date: 20130531
  Transmission Date: 20140414
  Serious: Yes (Hospitalization)
  Sender: FDA-Public Use
  Company Number: FR-ROCHE-1230019

PATIENT
  Age: 84 Year
  Sex: Female

DRUGS (11)
  1. TAMIFLU [Suspect]
     Indication: INFLUENZA
     Dosage: 75 MG
     Route: 048
     Dates: start: 20130213, end: 20130217
  2. KARDEGIC [Suspect]
     Indication: PRODUCT USED FOR UNKNOWN INDICATION
     Dosage: 75 MG
     Route: 048
     Dates: end: 20130215
  3. LEVOTHYROX [Concomitant]
     Dosage: 75 MCG
     Route: 048
     Dates: start: 201203
  4. TRIATEC [Concomitant]
     Dosage: 5 MG
     Route: 048
     Dates: end: 20130216
  5. GAVISCON (ALGINIC ACID) [Concomitant]
     Route: 048
  6. MONURIL [Concomitant]
     Dosage: ADULTS 3G
     Route: 048
     Dates: start: 20130214, end: 20130214
  7. DEROXAT [Concomitant]
  8. XANAX [Concomitant]
  9. PANTOPRAZOLE [Concomitant]
     Route: 065
  10. TRIMEBUTINE [Concomitant]
  11. VOLTARENE (FRANCE) [Concomitant]
     Route: 065
     Dates: start: 20130129

REACTIONS (3)
  - Colitis [Recovered/Resolved]
  - Rectal haemorrhage [Recovered/Resolved]
  - Anaemia [Recovering/Resolving]
